FAERS Safety Report 17727526 (Version 1)
Quarter: 2020Q2

REPORT INFORMATION
  Report Type: Spontaneous
  Country: US (occurrence: US)
  Receive Date: 20200429
  Receipt Date: 20200429
  Transmission Date: 20200714
  Serious: Yes (Other)
  Sender: FDA-Public Use
  Company Number: None

PATIENT
  Age: 18 Year
  Sex: Male
  Weight: 71.21 kg

DRUGS (1)
  1. TESTOSTERONE 1.62% [Suspect]
     Active Substance: TESTOSTERONE
     Dosage: ?          OTHER DOSE:ONE PUMP PU ;OTHER ROUTE:SKIN ADDICIHON E23.0?
     Dates: start: 201809, end: 20200108

REACTIONS (5)
  - Disturbance in attention [None]
  - Asthenia [None]
  - Product substitution issue [None]
  - Erectile dysfunction [None]
  - Blood testosterone decreased [None]

NARRATIVE: CASE EVENT DATE: 20191211
